FAERS Safety Report 8501400-0 (Version None)
Quarter: 2012Q3

REPORT INFORMATION
  Report Type: 
  Country: None (occurrence: None)
  Receive Date: 20120710
  Receipt Date: 20120702
  Transmission Date: 20120928
  Serious: Yes (Death)
  Sender: FDA-Public Use
  Company Number: JP-JNJFOC-20120703915

PATIENT
  Sex: Male

DRUGS (5)
  1. STEROIDS NOS [Concomitant]
  2. LANSOPRAZOLE [Concomitant]
     Route: 048
  3. STELARA [Suspect]
     Indication: PSORIASIS
     Route: 058
     Dates: start: 20120217, end: 20120217
  4. ANPLAG [Concomitant]
     Route: 048
  5. TICLOPIDINE HCL [Concomitant]
     Route: 048

REACTIONS (1)
  - COMPLETED SUICIDE [None]
